FAERS Safety Report 23240291 (Version 1)
Quarter: 2023Q4

REPORT INFORMATION
  Report Type: Spontaneous
  Country: RO (occurrence: RO)
  Receive Date: 20231129
  Receipt Date: 20231129
  Transmission Date: 20240110
  Serious: Yes (Other)
  Sender: FDA-Public Use
  Company Number: RO-ORPHANEU-2023007966

PATIENT

DRUGS (4)
  1. TEMOZOLOMIDE [Suspect]
     Active Substance: TEMOZOLOMIDE
     Indication: Neuroblastoma
     Dosage: 100 MG/M2 PER DAY (DAY 1 TO 5)
     Dates: start: 202202, end: 202202
  2. IRINOTECAN [Suspect]
     Active Substance: IRINOTECAN
     Indication: Neuroblastoma
     Dosage: 50 MG/M2 PER DAY (DAY 1 TO 5)
     Dates: start: 202202
  3. DINUTUXIMAB BETA [Suspect]
     Active Substance: DINUTUXIMAB BETA
     Indication: Neuroblastoma
     Dosage: RESTARTED AT 50% RATE
     Dates: start: 202202, end: 202202
  4. DINUTUXIMAB BETA [Suspect]
     Active Substance: DINUTUXIMAB BETA
     Dosage: 17.5 MG/M2 PER DAY FOR 10 HOURS FOR 5 DAYS
     Dates: start: 202202, end: 202202

REACTIONS (6)
  - Pyrexia [Unknown]
  - Diastolic hypotension [Recovered/Resolved]
  - Capillary leak syndrome [Unknown]
  - Pruritus [Unknown]
  - Chills [Unknown]
  - Rash papular [Unknown]

NARRATIVE: CASE EVENT DATE: 20220201
